FAERS Safety Report 25851420 (Version 1)
Quarter: 2025Q3

REPORT INFORMATION
  Report Type: Report from Study
  Country: CA (occurrence: CA)
  Receive Date: 20250926
  Receipt Date: 20250926
  Transmission Date: 20251021
  Serious: Yes (Other)
  Sender: TAKEDA
  Company Number: CA-TAKEDA-2024TUS051987

PATIENT
  Age: 51 Year
  Sex: Male
  Weight: 108 kg

DRUGS (19)
  1. ADYNOVATE [Suspect]
     Active Substance: ANTIHEMOPHILIC FACTOR, HUMAN RECOMBINANT
     Indication: Factor VIII deficiency
  2. ADYNOVATE [Suspect]
     Active Substance: ANTIHEMOPHILIC FACTOR, HUMAN RECOMBINANT
     Dosage: 4000 INTERNATIONAL UNIT, 2/WEEK
     Dates: start: 20240430
  3. ADYNOVATE [Suspect]
     Active Substance: ANTIHEMOPHILIC FACTOR, HUMAN RECOMBINANT
  4. ADYNOVATE [Suspect]
     Active Substance: ANTIHEMOPHILIC FACTOR, HUMAN RECOMBINANT
     Dosage: 4000 INTERNATIONAL UNIT, 2/WEEK
  5. ADYNOVATE [Suspect]
     Active Substance: ANTIHEMOPHILIC FACTOR, HUMAN RECOMBINANT
  6. ADYNOVATE [Suspect]
     Active Substance: ANTIHEMOPHILIC FACTOR, HUMAN RECOMBINANT
     Dosage: 4000 INTERNATIONAL UNIT, 2/WEEK
  7. ADYNOVATE [Suspect]
     Active Substance: ANTIHEMOPHILIC FACTOR, HUMAN RECOMBINANT
     Dosage: 4000 INTERNATIONAL UNIT, 2/WEEK
  8. ADYNOVATE [Suspect]
     Active Substance: ANTIHEMOPHILIC FACTOR, HUMAN RECOMBINANT
     Dosage: 4000 INTERNATIONAL UNIT, 2/WEEK
  9. ADYNOVATE [Suspect]
     Active Substance: ANTIHEMOPHILIC FACTOR, HUMAN RECOMBINANT
     Dosage: 4000 INTERNATIONAL UNIT, 2/WEEK
  10. ADYNOVATE [Suspect]
     Active Substance: ANTIHEMOPHILIC FACTOR, HUMAN RECOMBINANT
     Dosage: 4000 INTERNATIONAL UNIT, 2/WEEK
  11. ADYNOVATE [Suspect]
     Active Substance: ANTIHEMOPHILIC FACTOR, HUMAN RECOMBINANT
     Dosage: UNK UNK, Q2WEEKS
  12. ADYNOVATE [Suspect]
     Active Substance: ANTIHEMOPHILIC FACTOR, HUMAN RECOMBINANT
     Dosage: UNK UNK, Q2WEEKS
  13. ADYNOVATE [Suspect]
     Active Substance: ANTIHEMOPHILIC FACTOR, HUMAN RECOMBINANT
     Dosage: UNK UNK, Q2WEEKS
  14. ADYNOVATE [Suspect]
     Active Substance: ANTIHEMOPHILIC FACTOR, HUMAN RECOMBINANT
     Dosage: 4000 INTERNATIONAL UNIT, Q2WEEKS
  15. ADYNOVATE [Suspect]
     Active Substance: ANTIHEMOPHILIC FACTOR, HUMAN RECOMBINANT
     Dosage: 4000 INTERNATIONAL UNIT, Q2WEEKS
  16. ADYNOVATE [Suspect]
     Active Substance: ANTIHEMOPHILIC FACTOR, HUMAN RECOMBINANT
     Dosage: 2084 INTERNATIONAL UNIT, Q2WEEKS
  17. ADYNOVATE [Suspect]
     Active Substance: ANTIHEMOPHILIC FACTOR, HUMAN RECOMBINANT
     Dosage: 4000 INTERNATIONAL UNIT, Q2WEEKS
  18. ADYNOVATE [Suspect]
     Active Substance: ANTIHEMOPHILIC FACTOR, HUMAN RECOMBINANT
     Dosage: 4000 INTERNATIONAL UNIT, 3/WEEK
  19. ADYNOVATE [Suspect]
     Active Substance: ANTIHEMOPHILIC FACTOR, HUMAN RECOMBINANT

REACTIONS (8)
  - Cataract [Unknown]
  - Haemorrhage [Unknown]
  - Extra dose administered [Recovered/Resolved]
  - Visual impairment [Recovered/Resolved]
  - Hand-eye coordination impaired [Unknown]
  - Incorrect dose administered [Unknown]
  - Inappropriate schedule of product administration [Unknown]
  - Product use issue [Unknown]

NARRATIVE: CASE EVENT DATE: 20240605
